FAERS Safety Report 9003027 (Version 3)
Quarter: 2013Q1

REPORT INFORMATION
  Report Type: Spontaneous
  Country: US (occurrence: US)
  Receive Date: 20130108
  Receipt Date: 20130207
  Transmission Date: 20140127
  Serious: Yes (Death)
  Sender: FDA-Public Use
  Company Number: US-PFIZER INC-2013007858

PATIENT
  Age: 57 Year
  Sex: Male

DRUGS (7)
  1. DILTIAZEM HCL [Suspect]
     Dosage: UNK
     Route: 048
  2. DIAZEPAM [Suspect]
     Dosage: UNK
     Route: 048
  3. AMIODARONE HCL [Suspect]
     Dosage: UNK
     Route: 048
  4. TRAMADOL [Suspect]
     Dosage: UNK
     Route: 048
  5. CARVEDILOL [Suspect]
     Dosage: UNK
     Route: 048
  6. LISINOPRIL [Suspect]
     Dosage: UNK
     Route: 048
  7. COCAINE [Suspect]
     Dosage: UNK
     Route: 048

REACTIONS (1)
  - Completed suicide [Fatal]
